FAERS Safety Report 16372930 (Version 1)
Quarter: 2019Q2

REPORT INFORMATION
  Report Type: Spontaneous
  Country: US (occurrence: US)
  Receive Date: 20190530
  Receipt Date: 20190530
  Transmission Date: 20190711
  Serious: Yes (Hospitalization, Other)
  Sender: FDA-Public Use
  Company Number: PHEH2019US022443

PATIENT
  Age: 46 Year
  Sex: Female

DRUGS (1)
  1. FEMARA [Suspect]
     Active Substance: LETROZOLE
     Indication: BREAST CANCER METASTATIC
     Dosage: UNK
     Route: 065

REACTIONS (13)
  - Metastases to adrenals [Unknown]
  - Erythema [Unknown]
  - Lymphadenopathy [Unknown]
  - Metastases to lymph nodes [Unknown]
  - Cellulitis [Unknown]
  - Pulmonary embolism [Unknown]
  - Breast mass [Unknown]
  - Dyspnoea [Unknown]
  - Malignant pleural effusion [Unknown]
  - Soft tissue mass [Unknown]
  - Lymphadenopathy mediastinal [Unknown]
  - Invasive ductal breast carcinoma [Unknown]
  - Metastases to bone [Unknown]

NARRATIVE: CASE EVENT DATE: 200703
